FAERS Safety Report 20785102 (Version 1)
Quarter: 2022Q2

REPORT INFORMATION
  Report Type: Spontaneous
  Country: US (occurrence: None)
  Receive Date: 20220503
  Receipt Date: 20220503
  Transmission Date: 20220720
  Serious: No
  Sender: FDA-Public Use
  Company Number: None

PATIENT
  Sex: Female

DRUGS (2)
  1. ICATIBANT ACETATE [Suspect]
     Active Substance: ICATIBANT ACETATE
     Indication: Sideroblastic anaemia
     Dosage: FREQUENCY : AS NEEDED;?
     Route: 058
     Dates: start: 20190705, end: 20220421
  2. ICATIBANT ACETATE [Suspect]
     Active Substance: ICATIBANT ACETATE
     Indication: Anaemia

REACTIONS (3)
  - Swollen tongue [None]
  - Thrombosis [None]
  - Nephrolithiasis [None]
